FAERS Safety Report 5313568-8 (Version None)
Quarter: 2007Q2

REPORT INFORMATION
  Report Type: 
  Country: None (occurrence: None)
  Receive Date: 20070501
  Receipt Date: 20060519
  Transmission Date: 20071010
  Serious: No
  Sender: FDA-Public Use
  Company Number: 2006UW09908

PATIENT
  Age: 75 Year
  Sex: Female
  Weight: 55.8 kg

DRUGS (6)
  1. ENTOCORT EC [Suspect]
     Indication: COLITIS MICROSCOPIC
     Route: 048
     Dates: start: 20051201
  2. ENTOCORT EC [Suspect]
     Dosage: 3 MG EVERY THREE-FOUR DAYS
     Route: 048
  3. THYROID TAB [Concomitant]
  4. ATENOLOL [Concomitant]
  5. PHENERGAN HCL [Concomitant]
  6. HERBAL SUPPLEMENTS [Concomitant]

REACTIONS (1)
  - ABDOMINAL DISTENSION [None]
